FAERS Safety Report 20829916 (Version 5)
Quarter: 2022Q4

REPORT INFORMATION
  Report Type: Report from Study
  Country: JP (occurrence: JP)
  Receive Date: 20220513
  Receipt Date: 20221216
  Transmission Date: 20230113
  Serious: Yes (Other)
  Sender: FDA-Public Use
  Company Number: JP-TAKEDA-2021TJP141976

PATIENT
  Age: 64 Year
  Sex: Male

DRUGS (76)
  1. LEUPROLIDE ACETATE [Suspect]
     Active Substance: LEUPROLIDE ACETATE
     Indication: Bulbospinal muscular atrophy congenital
     Dosage: 11.25 MILLIGRAM, Q3MONTHS
     Route: 058
     Dates: start: 20171019
  2. BETAHISTINE MESILATE [Concomitant]
     Active Substance: BETAHISTINE MESILATE
     Indication: Dizziness
     Dosage: 6 MILLIGRAM
     Route: 065
     Dates: start: 20190821, end: 20190904
  3. PREDNISOLONE [Concomitant]
     Active Substance: PREDNISOLONE
     Indication: Nephrotic syndrome
     Dosage: 2 MILLIGRAM
     Route: 065
     Dates: end: 20180214
  4. PREDNISOLONE [Concomitant]
     Active Substance: PREDNISOLONE
     Indication: Nephrotic syndrome
     Dosage: 1 MILLIGRAM
     Route: 065
     Dates: start: 20180215, end: 20180516
  5. PREDNISOLONE [Concomitant]
     Active Substance: PREDNISOLONE
     Indication: Nephrotic syndrome
     Dosage: 3 MILLIGRAM
     Route: 065
     Dates: start: 20180517, end: 20180704
  6. PREDNISOLONE [Concomitant]
     Active Substance: PREDNISOLONE
     Indication: Nephrotic syndrome
     Dosage: 6 MILLIGRAM
     Route: 065
     Dates: start: 20180705, end: 20181206
  7. PREDNISOLONE [Concomitant]
     Active Substance: PREDNISOLONE
     Indication: Nephrotic syndrome
     Dosage: 7 MILLIGRAM
     Route: 065
  8. PREDNISOLONE [Concomitant]
     Active Substance: PREDNISOLONE
     Indication: Nephrotic syndrome
     Dosage: 8 MILLIGRAM
     Route: 065
  9. PREDNISOLONE [Concomitant]
     Active Substance: PREDNISOLONE
     Indication: Nephrotic syndrome
     Dosage: UNK
     Route: 065
  10. PREDNISOLONE [Concomitant]
     Active Substance: PREDNISOLONE
     Indication: Nephrotic syndrome
     Dosage: UNK
     Route: 065
  11. LANSOPRAZOLE [Concomitant]
     Active Substance: LANSOPRAZOLE
     Indication: Prophylaxis against gastrointestinal ulcer
     Dosage: 15 MILLIGRAM
     Route: 065
  12. BREDININ OD [Concomitant]
     Indication: Product used for unknown indication
     Dosage: 150 MILLIGRAM
     Route: 065
  13. ONEALFA [Concomitant]
     Active Substance: ALFACALCIDOL
     Indication: Osteoporosis prophylaxis
     Dosage: 0.5 MICROGRAM
     Route: 065
  14. MIYA-BM [Concomitant]
     Active Substance: CLOSTRIDIUM BUTYRICUM SPORES STRAIN M-55
     Indication: Prophylaxis against gastrointestinal ulcer
     Dosage: 3 GRAM
     Route: 065
     Dates: end: 20180516
  15. BROTIZOLAM [Concomitant]
     Active Substance: BROTIZOLAM
     Indication: Insomnia
     Dosage: 0.25 MILLIGRAM
     Route: 065
  16. AMBROXOL HYDROCHLORIDE [Concomitant]
     Active Substance: AMBROXOL HYDROCHLORIDE
     Indication: Bulbospinal muscular atrophy congenital
     Dosage: 45 MILLIGRAM
     Route: 065
  17. AMBROXOL HYDROCHLORIDE [Concomitant]
     Active Substance: AMBROXOL HYDROCHLORIDE
     Indication: Bulbospinal muscular atrophy congenital
  18. AMBROXOL HYDROCHLORIDE [Concomitant]
     Active Substance: AMBROXOL HYDROCHLORIDE
     Indication: Bulbospinal muscular atrophy congenital
  19. CARBOCYSTEINE [Concomitant]
     Active Substance: CARBOCYSTEINE
     Indication: Bulbospinal muscular atrophy congenital
     Dosage: 3 GRAM
     Route: 065
  20. CARBOCYSTEINE [Concomitant]
     Active Substance: CARBOCYSTEINE
     Indication: Bulbospinal muscular atrophy congenital
  21. CARBOCYSTEINE [Concomitant]
     Active Substance: CARBOCYSTEINE
     Indication: Bulbospinal muscular atrophy congenital
  22. AMINO ACIDS\DEXTROSE\ELECTROLYTES NOS\SOYBEAN OIL\VITAMINS [Concomitant]
     Active Substance: AMINO ACIDS\DEXTROSE\ELECTROLYTES NOS\SOYBEAN OIL\VITAMINS
     Indication: Bulbospinal muscular atrophy congenital
     Dosage: 1600 MILLILITER
     Route: 050
     Dates: end: 20171206
  23. AMINO ACIDS\DEXTROSE\ELECTROLYTES NOS\SOYBEAN OIL\VITAMINS [Concomitant]
     Active Substance: AMINO ACIDS\DEXTROSE\ELECTROLYTES NOS\SOYBEAN OIL\VITAMINS
     Indication: Bulbospinal muscular atrophy congenital
     Dosage: 1000 MILLILITER
     Route: 050
     Dates: start: 20171221, end: 20180404
  24. AMINO ACIDS\DEXTROSE\ELECTROLYTES NOS\SOYBEAN OIL\VITAMINS [Concomitant]
     Active Substance: AMINO ACIDS\DEXTROSE\ELECTROLYTES NOS\SOYBEAN OIL\VITAMINS
     Indication: Bulbospinal muscular atrophy congenital
     Dosage: 2000 MILLILITER
     Route: 050
     Dates: start: 20180405, end: 20180418
  25. AMINO ACIDS\DEXTROSE\ELECTROLYTES NOS\SOYBEAN OIL\VITAMINS [Concomitant]
     Active Substance: AMINO ACIDS\DEXTROSE\ELECTROLYTES NOS\SOYBEAN OIL\VITAMINS
     Indication: Bulbospinal muscular atrophy congenital
     Dosage: 1400 MILLILITER
     Route: 050
     Dates: start: 20180419, end: 20180506
  26. AMINO ACIDS\DEXTROSE\ELECTROLYTES NOS\SOYBEAN OIL\VITAMINS [Concomitant]
     Active Substance: AMINO ACIDS\DEXTROSE\ELECTROLYTES NOS\SOYBEAN OIL\VITAMINS
     Indication: Bulbospinal muscular atrophy congenital
     Dosage: 1000 MILLILITER
     Route: 050
     Dates: start: 20180621, end: 20190620
  27. AMINO ACIDS\DEXTROSE\ELECTROLYTES NOS\SOYBEAN OIL\VITAMINS [Concomitant]
     Active Substance: AMINO ACIDS\DEXTROSE\ELECTROLYTES NOS\SOYBEAN OIL\VITAMINS
     Indication: Bulbospinal muscular atrophy congenital
     Dosage: 600 GRAM
     Route: 050
     Dates: start: 20171118, end: 20191017
  28. AMINO ACIDS\DEXTROSE\ELECTROLYTES NOS\SOYBEAN OIL\VITAMINS [Concomitant]
     Active Substance: AMINO ACIDS\DEXTROSE\ELECTROLYTES NOS\SOYBEAN OIL\VITAMINS
     Indication: Bulbospinal muscular atrophy congenital
     Dosage: 400 MILLILITER
     Route: 050
     Dates: start: 20190912
  29. AMINO ACIDS\DEXTROSE\ELECTROLYTES NOS\SOYBEAN OIL\VITAMINS [Concomitant]
     Active Substance: AMINO ACIDS\DEXTROSE\ELECTROLYTES NOS\SOYBEAN OIL\VITAMINS
     Indication: Bulbospinal muscular atrophy congenital
     Dosage: 600 MILLILITER
     Route: 050
     Dates: start: 20190620, end: 20190801
  30. SODIUM CHLORIDE [Concomitant]
     Active Substance: SODIUM CHLORIDE
     Indication: Prophylaxis
     Dosage: 9 GRAM
     Route: 065
     Dates: end: 20171101
  31. SODIUM CHLORIDE [Concomitant]
     Active Substance: SODIUM CHLORIDE
     Indication: Prophylaxis
     Dosage: 3 GRAM
     Route: 065
     Dates: start: 20171116, end: 20180214
  32. SODIUM CHLORIDE [Concomitant]
     Active Substance: SODIUM CHLORIDE
     Indication: Prophylaxis
     Dosage: 7.5 MILLILITER
     Route: 050
     Dates: end: 20190801
  33. SODIUM CHLORIDE [Concomitant]
     Active Substance: SODIUM CHLORIDE
     Indication: Prophylaxis
  34. SODIUM CHLORIDE [Concomitant]
     Active Substance: SODIUM CHLORIDE
     Indication: Prophylaxis
  35. BISOLVON [Concomitant]
     Active Substance: BROMHEXINE HYDROCHLORIDE
     Indication: Bulbospinal muscular atrophy congenital
     Dosage: 3 MILLILITER
     Route: 050
     Dates: end: 20190309
  36. BISOLVON [Concomitant]
     Active Substance: BROMHEXINE HYDROCHLORIDE
     Indication: Bulbospinal muscular atrophy congenital
     Dosage: 3 MILLILITER
     Route: 050
     Dates: start: 20190912
  37. BISOLVON [Concomitant]
     Active Substance: BROMHEXINE HYDROCHLORIDE
     Indication: Bulbospinal muscular atrophy congenital
  38. PROCATEROL HYDROCHLORIDE [Concomitant]
     Active Substance: PROCATEROL HYDROCHLORIDE
     Indication: Bulbospinal muscular atrophy congenital
     Dosage: 1.5 MILLILITER
     Route: 050
     Dates: end: 20180201
  39. PROCATEROL HYDROCHLORIDE [Concomitant]
     Active Substance: PROCATEROL HYDROCHLORIDE
     Indication: Bulbospinal muscular atrophy congenital
  40. PROCATEROL HYDROCHLORIDE [Concomitant]
     Active Substance: PROCATEROL HYDROCHLORIDE
     Indication: Bulbospinal muscular atrophy congenital
  41. CEFDITOREN PIVOXIL [Concomitant]
     Active Substance: CEFDITOREN PIVOXIL
     Indication: Bulbospinal muscular atrophy congenital
     Dosage: 3 GRAM
     Route: 065
     Dates: end: 20180402
  42. CEFDITOREN PIVOXIL [Concomitant]
     Active Substance: CEFDITOREN PIVOXIL
     Indication: Bulbospinal muscular atrophy congenital
     Dosage: 100 MILLIGRAM
     Route: 065
     Dates: start: 20190124, end: 20190130
  43. JUVELA [Concomitant]
     Active Substance: .ALPHA.-TOCOPHEROL\RETINOL
     Indication: Chillblains
     Dosage: UNK
     Route: 065
  44. JUVELA [Concomitant]
     Active Substance: .ALPHA.-TOCOPHEROL\RETINOL
     Indication: Chillblains
     Dosage: UNK
     Route: 065
  45. JUVELA [Concomitant]
     Active Substance: .ALPHA.-TOCOPHEROL\RETINOL
     Indication: Chillblains
  46. JUVELA [Concomitant]
     Active Substance: .ALPHA.-TOCOPHEROL\RETINOL
     Indication: Chillblains
  47. UREA [Concomitant]
     Active Substance: UREA
     Indication: Xeroderma
     Dosage: UNK
     Route: 065
  48. UREA [Concomitant]
     Active Substance: UREA
     Indication: Xeroderma
     Dosage: UNK
     Route: 065
  49. NIZORAL [Concomitant]
     Active Substance: KETOCONAZOLE
     Indication: Seborrhoeic dermatitis
     Dosage: UNK
     Route: 065
     Dates: end: 20171019
  50. NIZORAL [Concomitant]
     Active Substance: KETOCONAZOLE
     Indication: Seborrhoeic dermatitis
     Dosage: UNK
     Route: 065
     Dates: end: 20171019
  51. KETOPROFEN [Concomitant]
     Active Substance: KETOPROFEN
     Indication: Bulbospinal muscular atrophy congenital
     Dosage: 1 DOSAGE FORM
     Route: 065
     Dates: end: 20190404
  52. KETOPROFEN [Concomitant]
     Active Substance: KETOPROFEN
     Indication: Bulbospinal muscular atrophy congenital
  53. KETOPROFEN [Concomitant]
     Active Substance: KETOPROFEN
     Indication: Bulbospinal muscular atrophy congenital
  54. CLOTIAZEPAM [Concomitant]
     Active Substance: CLOTIAZEPAM
     Indication: Insomnia
     Dosage: 5 MILLIGRAM
     Route: 065
     Dates: end: 20171019
  55. DIETARY SUPPLEMENT\PROBIOTICS [Concomitant]
     Active Substance: DIETARY SUPPLEMENT\PROBIOTICS
     Indication: Prophylaxis against gastrointestinal ulcer
     Dosage: 3 GRAM
     Route: 065
     Dates: end: 20180214
  56. MAGNESIUM OXIDE [Concomitant]
     Active Substance: MAGNESIUM OXIDE
     Indication: Constipation
     Dosage: 990 MILLIGRAM
     Route: 065
     Dates: start: 20180301
  57. MAGNESIUM OXIDE [Concomitant]
     Active Substance: MAGNESIUM OXIDE
     Indication: Constipation
  58. MAGNESIUM OXIDE [Concomitant]
     Active Substance: MAGNESIUM OXIDE
     Indication: Constipation
  59. HYALURONATE SODIUM [Concomitant]
     Active Substance: HYALURONATE SODIUM
     Indication: Dry eye
     Dosage: 5 MILLILITER
     Route: 047
  60. DENOSUMAB [Concomitant]
     Active Substance: DENOSUMAB
     Indication: Bulbospinal muscular atrophy congenital
     Dosage: 1 MILLILITER
     Route: 050
     Dates: start: 20180104
  61. SODIUM BICARBONATE\SODIUM PHOSPHATE, MONOBASIC [Concomitant]
     Active Substance: SODIUM BICARBONATE\SODIUM PHOSPHATE, MONOBASIC
     Indication: Constipation
     Dosage: 1 DOSAGE FORM
     Route: 054
     Dates: start: 20180517
  62. SODIUM BICARBONATE\SODIUM PHOSPHATE, MONOBASIC [Concomitant]
     Active Substance: SODIUM BICARBONATE\SODIUM PHOSPHATE, MONOBASIC
     Indication: Constipation
  63. SODIUM BICARBONATE\SODIUM PHOSPHATE, MONOBASIC [Concomitant]
     Active Substance: SODIUM BICARBONATE\SODIUM PHOSPHATE, MONOBASIC
     Indication: Constipation
  64. PETROLATUM [Concomitant]
     Active Substance: PETROLATUM
     Indication: Xeroderma
     Dosage: UNK
     Route: 065
  65. PETROLATUM [Concomitant]
     Active Substance: PETROLATUM
     Indication: Xeroderma
     Dosage: UNK
     Route: 065
  66. AMPICILLIN SODIUM\SULBACTAM SODIUM [Concomitant]
     Active Substance: AMPICILLIN SODIUM\SULBACTAM SODIUM
     Indication: Pneumonia
     Dosage: 1.5 GRAM
     Route: 050
     Dates: start: 20180402, end: 20180405
  67. ROCEPHIN [Concomitant]
     Active Substance: CEFTRIAXONE SODIUM
     Indication: Pneumonia
     Dosage: 1 GRAM
     Route: 050
     Dates: start: 20180402, end: 20180405
  68. CALCIUM GLUCONATE\DEXTROSE\MAGNESIUM CHLORIDE\POTASSIUM CHLORIDE\SODIU [Concomitant]
     Active Substance: CALCIUM GLUCONATE\DEXTROSE\MAGNESIUM CHLORIDE\POTASSIUM CHLORIDE\SODIUM ACETATE\SODIUM CHLORIDE\TRIS
     Indication: Pneumonia
     Dosage: 500 MILLILITER
     Route: 050
     Dates: start: 20180406, end: 20180409
  69. MAXIPIME [Concomitant]
     Active Substance: CEFEPIME HYDROCHLORIDE
     Indication: Pneumonia
     Dosage: 1 GRAM
     Route: 050
     Dates: start: 20180406, end: 20180409
  70. MEROPENEM [Concomitant]
     Active Substance: MEROPENEM
     Indication: Pneumonia
     Dosage: 500 MILLIGRAM
     Route: 050
     Dates: start: 20180411, end: 20180413
  71. CALONAL [Concomitant]
     Active Substance: ACETAMINOPHEN
     Indication: Nasopharyngitis
     Dosage: 200 MILLIGRAM
     Route: 065
     Dates: end: 20180419
  72. PREDONINE [Concomitant]
     Active Substance: PREDNISOLONE
     Indication: Product used for unknown indication
     Dosage: 5 MILLIGRAM
     Route: 065
     Dates: end: 20180705
  73. Travelmin [Concomitant]
     Indication: Dizziness
     Dosage: UNK
     Route: 065
     Dates: start: 20190821, end: 20190904
  74. DIPHENIDOL HYDROCHLORIDE [Concomitant]
     Active Substance: DIPHENIDOL HYDROCHLORIDE
     Indication: Dizziness
     Dosage: 25 MILLIGRAM
     Route: 065
     Dates: start: 20190821, end: 20190904
  75. GLYCERIN [Concomitant]
     Active Substance: GLYCERIN
     Indication: Bulbospinal muscular atrophy congenital
     Dosage: 60 MILLILITER
     Route: 065
     Dates: start: 20181206, end: 20181206
  76. ENORAS [Concomitant]
     Indication: Bulbospinal muscular atrophy congenital
     Dosage: 375 MILLILITER
     Route: 050
     Dates: start: 20190620, end: 20191017

REACTIONS (10)
  - Nephrotic syndrome [Recovered/Resolved]
  - Delirium [Not Recovered/Not Resolved]
  - Condition aggravated [Not Recovered/Not Resolved]
  - Upper respiratory tract inflammation [Recovered/Resolved]
  - Rhinitis allergic [Recovered/Resolved]
  - Chillblains [Recovered/Resolved]
  - Tinea pedis [Recovered/Resolved]
  - Agitation [Not Recovered/Not Resolved]
  - Condition aggravated [Not Recovered/Not Resolved]
  - Stoma site reaction [Recovered/Resolved]

NARRATIVE: CASE EVENT DATE: 20171221
